FAERS Safety Report 25339198 (Version 2)
Quarter: 2025Q3

REPORT INFORMATION
  Report Type: Report from Study
  Country: US (occurrence: US)
  Receive Date: 20250521
  Receipt Date: 20250810
  Transmission Date: 20251021
  Serious: Yes (Other)
  Sender: ALEXION PHARMACEUTICALS
  Company Number: US-AstraZeneca-CH-00871982A

PATIENT
  Sex: Male

DRUGS (1)
  1. ACALABRUTINIB [Suspect]
     Active Substance: ACALABRUTINIB
     Indication: Chronic lymphocytic leukaemia
     Dosage: 100 MILLIGRAM, BID
     Dates: start: 202403

REACTIONS (9)
  - Haemoglobin decreased [Unknown]
  - Immune system disorder [Unknown]
  - Vision blurred [Unknown]
  - Pruritus [Unknown]
  - White blood cell count increased [Unknown]
  - Platelet count decreased [Unknown]
  - Cataract [Unknown]
  - Sleep disorder [Unknown]
  - Drug hypersensitivity [Unknown]
